FAERS Safety Report 12242066 (Version 1)
Quarter: 2016Q2

REPORT INFORMATION
  Report Type: Report from Study
  Country: US (occurrence: US)
  Receive Date: 20160406
  Receipt Date: 20160406
  Transmission Date: 20160815
  Serious: No
  Sender: FDA-Public Use
  Company Number: GXBR2016US001043

PATIENT
  Sex: Female
  Weight: 24.49 kg

DRUGS (1)
  1. OMNITROPE [Suspect]
     Active Substance: SOMATROPIN
     Indication: GROWTH HORMONE DEFICIENCY
     Dosage: 0.8 MG, QD
     Route: 065
     Dates: start: 20160318

REACTIONS (2)
  - Injection site pain [Not Recovered/Not Resolved]
  - Incorrect route of drug administration [Unknown]
